FAERS Safety Report 13640079 (Version 1)
Quarter: 2017Q2

REPORT INFORMATION
  Report Type: Spontaneous
  Country: US (occurrence: US)
  Receive Date: 20170609
  Receipt Date: 20170609
  Transmission Date: 20170830
  Serious: No
  Sender: FDA-Public Use
  Company Number: US-ROCHE-1512736

PATIENT
  Age: 53 Year
  Sex: Female

DRUGS (1)
  1. KLONOPIN [Suspect]
     Active Substance: CLONAZEPAM
     Indication: PRODUCT USED FOR UNKNOWN INDICATION
     Route: 065

REACTIONS (13)
  - Dysgraphia [Unknown]
  - Muscle twitching [Unknown]
  - Dysarthria [Unknown]
  - Fall [Unknown]
  - Tremor [Unknown]
  - Peripheral swelling [Unknown]
  - Gait disturbance [Unknown]
  - Confusional state [Unknown]
  - Dry mouth [Unknown]
  - Rhinorrhoea [Unknown]
  - Hypoaesthesia [Unknown]
  - Drooling [Unknown]
  - Anxiety [Unknown]
